FAERS Safety Report 7632408-5 (Version None)
Quarter: 2011Q3

REPORT INFORMATION
  Report Type: 
  Country: None (occurrence: None)
  Receive Date: 20110725
  Receipt Date: 20100826
  Transmission Date: 20111222
  Serious: Yes (Other)
  Sender: FDA-Public Use
  Company Number: US-BRISTOL-MYERS SQUIBB COMPANY-15257157

PATIENT
  Age: 77 Year
  Sex: Male

DRUGS (9)
  1. VITAMIN E [Concomitant]
  2. COUMADIN [Suspect]
  3. FISH OIL [Concomitant]
  4. LASIX [Concomitant]
  5. ALLEGRA [Concomitant]
  6. LIPITOR [Concomitant]
  7. ZANTAC [Concomitant]
  8. POTASSIUM [Concomitant]
  9. SPIRONOLACTONE [Concomitant]

REACTIONS (2)
  - BLUE TOE SYNDROME [None]
  - DYSPNOEA [None]
